FAERS Safety Report 25791549 (Version 2)
Quarter: 2025Q3

REPORT INFORMATION
  Report Type: Spontaneous
  Country: US (occurrence: US)
  Receive Date: 20250911
  Receipt Date: 20250916
  Transmission Date: 20251021
  Serious: Yes (Other)
  Sender: PFIZER
  Company Number: US-PFIZER INC-PV202500109010

PATIENT
  Age: 46 Year
  Sex: Male

DRUGS (2)
  1. OXALIPLATIN [Suspect]
     Active Substance: OXALIPLATIN
     Indication: Colorectal cancer metastatic
     Dates: start: 202412
  2. CAPECITABINE [Suspect]
     Active Substance: CAPECITABINE
     Indication: Colorectal cancer metastatic
     Dates: start: 202412

REACTIONS (3)
  - Colorectal cancer metastatic [Unknown]
  - Malignant neoplasm progression [Unknown]
  - Metastases to liver [Unknown]

NARRATIVE: CASE EVENT DATE: 20250101
